FAERS Safety Report 8513711 (Version 3)
Quarter: 2013Q1

REPORT INFORMATION
  Report Type: Spontaneous
  Country: GB (occurrence: None)
  Receive Date: 20120410
  Receipt Date: 20130329
  Transmission Date: 20140127
  Serious: Yes (Hospitalization, Other)
  Sender: FDA-Public Use
  Company Number: AUR-APL-2012-01641

PATIENT
  Age: 55 Year
  Sex: Female
  Weight: 146 kg

DRUGS (6)
  1. FLUOXETINE [Suspect]
     Dosage: (20 MG), ORAL
     Route: 048
     Dates: end: 20120301
  2. EFFEXOR [Suspect]
     Dosage: (225 MG)
     Dates: start: 20120208
  3. BENDROFLUMETHIAZIDE (BENDROFLUMETHIAZIDE) [Concomitant]
  4. IBUPROFEN (IBUPROFEN) [Concomitant]
  5. IRBESARTAN (IRBESARTAN) [Concomitant]
  6. METFORMIN HYDROCHLORIDE [Concomitant]

REACTIONS (2)
  - ENDOMETRIAL HYPERPLASIA [None]
  - MENORRHAGIA [None]
